FAERS Safety Report 5582567-3 (Version None)
Quarter: 2007Q4

REPORT INFORMATION
  Report Type: 
  Country: None (occurrence: None)
  Receive Date: 20071130
  Receipt Date: 20070316
  Transmission Date: 20080405
  Serious: Yes (Other)
  Sender: FDA-Public Use
  Company Number: WAES 0703USA03381

PATIENT
  Age: 73 Year
  Sex: Female
  Weight: 58.0604 kg

DRUGS (6)
  1. FOSAMAX [Suspect]
     Indication: OSTEOPOROSIS
     Dosage: 70 MG/WKY/PO
     Route: 048
     Dates: start: 20061207, end: 20070201
  2. ACTONEL [Concomitant]
  3. PAXIL [Concomitant]
  4. SEROQUEL [Concomitant]
  5. SYNTHROID [Concomitant]
  6. LITHIUM CITRATE [Concomitant]

REACTIONS (1)
  - OSTEONECROSIS [None]
